FAERS Safety Report 11137132 (Version 10)
Quarter: 2018Q1

REPORT INFORMATION
  Report Type: Report from Study
  Country: CA (occurrence: CA)
  Receive Date: 20150526
  Receipt Date: 20180307
  Transmission Date: 20180508
  Serious: Yes (Death, Hospitalization, Other)
  Sender: FDA-Public Use
  Company Number: CA-INCYTE CORPORATION-2015IN000884

PATIENT

DRUGS (8)
  1. JAKAVI [Suspect]
     Active Substance: RUXOLITINIB
     Indication: MYELOFIBROSIS
     Dosage: 5 MG, BID
     Route: 048
     Dates: start: 20141023
  2. JAKAVI [Suspect]
     Active Substance: RUXOLITINIB
     Dosage: 20 MG, BID
     Route: 048
     Dates: start: 20171220
  3. JAKAVI [Suspect]
     Active Substance: RUXOLITINIB
     Dosage: 20 MG, BID
     Route: 048
  4. HYDREA [Concomitant]
     Active Substance: HYDROXYUREA
     Indication: PLATELET COUNT INCREASED
     Dosage: UNK UNK, BIW
     Route: 065
  5. JAKAVI [Suspect]
     Active Substance: RUXOLITINIB
     Dosage: 15 MG, QD FOR 2 DAYS
     Route: 048
  6. JAKAVI [Suspect]
     Active Substance: RUXOLITINIB
     Dosage: 15 MG, BID FOR TWO DAYS
     Route: 048
  7. JAKAVI [Suspect]
     Active Substance: RUXOLITINIB
     Dosage: 15 MG, BID
     Route: 048
  8. JAKAVI [Suspect]
     Active Substance: RUXOLITINIB
     Dosage: 20 MG, BID
     Route: 048
     Dates: end: 20171220

REACTIONS (13)
  - Arthralgia [Unknown]
  - Metastases to lymph nodes [Recovering/Resolving]
  - Asthenia [Unknown]
  - Breast cancer [Recovering/Resolving]
  - Second primary malignancy [Recovering/Resolving]
  - Pain in extremity [Unknown]
  - Abdominal pain upper [Unknown]
  - Liver disorder [Unknown]
  - Haemorrhage [Unknown]
  - Headache [Unknown]
  - Death [Fatal]
  - Splenomegaly [Unknown]
  - Balance disorder [Unknown]

NARRATIVE: CASE EVENT DATE: 201606
